FAERS Safety Report 5693433-7 (Version None)
Quarter: 2008Q2

REPORT INFORMATION
  Report Type: 
  Country: None (occurrence: None)
  Receive Date: 20080403
  Receipt Date: 20080328
  Transmission Date: 20081010
  Serious: Yes (Other)
  Sender: FDA-Public Use
  Company Number: US-BAYER-200818364NA

PATIENT
  Sex: Female

DRUGS (1)
  1. MIRENA [Suspect]
     Route: 015
     Dates: start: 20071101, end: 20080311

REACTIONS (8)
  - ABDOMINAL PAIN [None]
  - ABDOMINAL PAIN LOWER [None]
  - ALOPECIA [None]
  - ARTHRALGIA [None]
  - INFLUENZA LIKE ILLNESS [None]
  - IUD MIGRATION [None]
  - VAGINAL HAEMORRHAGE [None]
  - WEIGHT INCREASED [None]
